FAERS Safety Report 5933721-X (Version None)
Quarter: 2008Q4

REPORT INFORMATION
  Report Type: 
  Country: None (occurrence: None)
  Receive Date: 20081029
  Receipt Date: 20081024
  Transmission Date: 20090506
  Serious: Yes (Life-Threatening, Hospitalization, Disabling)
  Sender: FDA-Public Use
  Company Number: US-BRISTOL-MYERS SQUIBB COMPANY-14383830

PATIENT
  Age: 58 Year
  Sex: Female

DRUGS (16)
  1. PACLITAXEL [Suspect]
     Indication: BREAST CANCER METASTATIC
     Dosage: TAKEN ON DAY 1,8,15 LAST TAKEN ON 13AUG2008 PATIENT OFF FROM STUDY FROM 10SEP08
     Route: 042
     Dates: start: 20070912, end: 20080813
  2. GEMZAR [Suspect]
     Indication: BREAST CANCER METASTATIC
     Dosage: TAKEN ON DAY 1 + 15 LAST TAKEN ON 06AUG2008 PATIENT OFF FROM STUDY FROM 10SEP08
     Route: 042
     Dates: start: 20070912, end: 20080806
  3. BEVACIZUMAB [Suspect]
     Indication: BREAST CANCER METASTATIC
     Dosage: TAKEN ON DAY 1,15 LAST TAKEN ON 06AUG2008 PATIENT OFF FROM STUDY FROM 10SEP08
     Route: 042
     Dates: start: 20070912, end: 20080806
  4. GABAPENTIN [Concomitant]
     Dates: start: 20070829
  5. FLEXERIL [Concomitant]
  6. OXYCONTIN [Concomitant]
     Dates: start: 20070815
  7. DILAUDID [Concomitant]
     Dates: start: 20070628
  8. KYTRIL [Concomitant]
     Dates: start: 20070829
  9. PHENERGAN HCL [Concomitant]
     Dates: start: 20080102
  10. METOPROLOL TARTRATE [Concomitant]
     Dates: start: 20080716
  11. MICARDIS [Concomitant]
  12. LASIX [Concomitant]
     Dates: start: 20080514
  13. ZOMETA [Concomitant]
     Dates: start: 20070724
  14. REGLAN [Concomitant]
  15. AMBIEN [Concomitant]
  16. RED BLOOD CELLS [Concomitant]
     Dosage: HUMAN
     Dates: start: 20080924, end: 20080924

REACTIONS (6)
  - CARDIOMYOPATHY [None]
  - ENCEPHALOPATHY [None]
  - GENERALISED OEDEMA [None]
  - MALIGNANT HYPERTENSION [None]
  - PULMONARY HYPERTENSION [None]
  - RENAL FAILURE ACUTE [None]
